FAERS Safety Report 6122469-7 (Version None)
Quarter: 2009Q1

REPORT INFORMATION
  Report Type: 
  Country: None (occurrence: None)
  Receive Date: 20090318
  Receipt Date: 20081208
  Transmission Date: 20090719
  Serious: No
  Sender: FDA-Public Use
  Company Number: US-ASTRAZENECA-2008UW27277

PATIENT
  Age: 74 Year
  Sex: Female

DRUGS (11)
  1. SYMBICORT [Suspect]
     Indication: ASTHMA
     Dosage: 160/4.5 UG
     Route: 055
     Dates: start: 20081101, end: 20081204
  2. SYMBICORT [Suspect]
     Indication: CHRONIC OBSTRUCTIVE PULMONARY DISEASE
     Dosage: 160/4.5 UG
     Route: 055
     Dates: start: 20081101, end: 20081204
  3. SINGULAIR [Concomitant]
  4. SPIRIVA [Concomitant]
  5. PROVENTIL [Concomitant]
  6. ALLOPURINOL [Concomitant]
  7. TRIAMTERENE [Concomitant]
  8. CALCIUM [Concomitant]
  9. ASPIRIN [Concomitant]
  10. LOVASTATIN [Concomitant]
  11. MOBIC [Concomitant]

REACTIONS (5)
  - APHONIA [None]
  - DIZZINESS [None]
  - DRY MOUTH [None]
  - DRY THROAT [None]
  - URINE ODOUR ABNORMAL [None]
